FAERS Safety Report 18663338 (Version 1)
Quarter: 2020Q4

REPORT INFORMATION
  Report Type: Report from Study
  Country: None (occurrence: US)
  Receive Date: 20201224
  Receipt Date: 20201224
  Transmission Date: 20210114
  Serious: No
  Sender: FDA-Public Use
  Company Number: US-ABBVIE-18P-163-2276204-00

PATIENT
  Sex: Female

DRUGS (7)
  1. VENCLEXTA [Suspect]
     Active Substance: VENETOCLAX
     Indication: CHRONIC LYMPHOCYTIC LEUKAEMIA
     Route: 048
     Dates: start: 20171001, end: 20171007
  2. VENCLEXTA [Suspect]
     Active Substance: VENETOCLAX
     Route: 048
     Dates: start: 20171015, end: 20171021
  3. VENCLEXTA [Suspect]
     Active Substance: VENETOCLAX
     Route: 048
     Dates: start: 20171022
  4. AMLODIPINE [Concomitant]
     Active Substance: AMLODIPINE BESYLATE
     Indication: PRODUCT USED FOR UNKNOWN INDICATION
     Dosage: ADJUST AS NEEDED
  5. IMBRUVICA [Suspect]
     Active Substance: IBRUTINIB
     Indication: CHRONIC LYMPHOCYTIC LEUKAEMIA
     Route: 048
  6. VENCLEXTA [Suspect]
     Active Substance: VENETOCLAX
     Route: 048
     Dates: start: 20171008, end: 20171014
  7. ALLOPURINOL. [Concomitant]
     Active Substance: ALLOPURINOL
     Indication: PRODUCT USED FOR UNKNOWN INDICATION
     Dates: end: 20171220

REACTIONS (11)
  - Nasopharyngitis [Unknown]
  - Blood potassium decreased [Unknown]
  - Contusion [Unknown]
  - Hyponatraemia [Unknown]
  - Feeling abnormal [Not Recovered/Not Resolved]
  - Stress [Not Recovered/Not Resolved]
  - Anxiety [Unknown]
  - Illness anxiety disorder [Not Recovered/Not Resolved]
  - Fatigue [Not Recovered/Not Resolved]
  - Rhinorrhoea [Unknown]
  - Pain [Unknown]
